FAERS Safety Report 8419439-2 (Version None)
Quarter: 2012Q2

REPORT INFORMATION
  Report Type: 
  Country: None (occurrence: None)
  Receive Date: 20120607
  Receipt Date: 20120530
  Transmission Date: 20120825
  Serious: Yes (Other)
  Sender: FDA-Public Use
  Company Number: JP-GLAXOSMITHKLINE-B0798666A

PATIENT
  Sex: Female

DRUGS (8)
  1. LAMICTAL [Suspect]
     Dosage: 100MG PER DAY
     Route: 048
     Dates: start: 20120328, end: 20120417
  2. LAMICTAL [Suspect]
     Indication: BIPOLAR DISORDER
     Dosage: 25MG ALTERNATE DAYS
     Route: 048
     Dates: start: 20120204, end: 20120207
  3. LAMICTAL [Suspect]
     Dosage: 25MG PER DAY
     Route: 048
     Dates: start: 20120208, end: 20120228
  4. LAMICTAL [Suspect]
     Dosage: 50MG PER DAY
     Route: 048
     Dates: start: 20120229, end: 20120327
  5. DEPAKENE [Suspect]
     Dosage: 800MG PER DAY
     Route: 048
     Dates: start: 20120416
  6. TOFRANIL [Suspect]
     Indication: DEPRESSION
     Dosage: 9IUAX PER DAY
     Route: 048
     Dates: start: 20030101, end: 20120417
  7. FLUVOXAMINE MALEATE [Suspect]
     Indication: DEPRESSION
     Dosage: 3IUAX PER DAY
     Route: 048
     Dates: start: 20030101, end: 20120417
  8. DEPAKENE [Suspect]
     Indication: PRODUCT USED FOR UNKNOWN INDICATION
     Dosage: 400MG PER DAY
     Route: 048
     Dates: start: 20070401, end: 20120415

REACTIONS (1)
  - MANIA [None]
